FAERS Safety Report 9496534 (Version 1)
Quarter: 2013Q3

REPORT INFORMATION
  Report Type: Spontaneous
  Country: NL (occurrence: NL)
  Receive Date: 20130904
  Receipt Date: 20130904
  Transmission Date: 20140515
  Serious: Yes (Hospitalization)
  Sender: FDA-Public Use
  Company Number: NL-AMGEN-NLDSP2013061862

PATIENT
  Age: 24 Year
  Sex: Female

DRUGS (10)
  1. NEULASTA [Suspect]
     Indication: PRODUCT USED FOR UNKNOWN INDICATION
     Dosage: 6 MG, Q3WK
     Route: 058
     Dates: start: 20130630
  2. CHEMOTHERAPEUTICS [Concomitant]
     Indication: NON-HODGKIN^S LYMPHOMA
     Dosage: UNK
  3. EMEND                              /01627301/ [Concomitant]
     Dosage: UNK
  4. PREDNISOLON                        /00016201/ [Concomitant]
     Dosage: UNK
  5. OMEPRAZOL                          /00661201/ [Concomitant]
     Dosage: UNK
  6. COTRIMAXAZOL [Concomitant]
     Dosage: UNK
  7. RISEDRONIC ACID [Concomitant]
     Dosage: UNK
  8. CALCIUM +D3 [Concomitant]
     Dosage: UNK
  9. ZOFRAN                             /00955301/ [Concomitant]
     Dosage: UNK
  10. DEXAMETHASON                       /00016001/ [Concomitant]
     Dosage: UNK

REACTIONS (1)
  - Cough [Unknown]
